FAERS Safety Report 18207349 (Version 1)
Quarter: 2020Q3

REPORT INFORMATION
  Report Type: Spontaneous
  Country: US (occurrence: US)
  Receive Date: 20200828
  Receipt Date: 20200828
  Transmission Date: 20201103
  Serious: No
  Sender: FDA-Public Use
  Company Number: US-HORIZON-TEP-1566-2020

PATIENT
  Age: 51 Year
  Sex: Female

DRUGS (1)
  1. TEPEZZA [Suspect]
     Active Substance: TEPROTUMUMAB-TRBW
     Indication: ENDOCRINE OPHTHALMOPATHY
     Dosage: 20MG/KG IV EVERY 3 WEEKS
     Route: 042
     Dates: start: 20200601

REACTIONS (2)
  - Fatigue [Unknown]
  - Swelling [Not Recovered/Not Resolved]
